FAERS Safety Report 6834556-6 (Version None)
Quarter: 2010Q3

REPORT INFORMATION
  Report Type: 
  Country: None (occurrence: None)
  Receive Date: 20100712
  Receipt Date: 20070517
  Transmission Date: 20110219
  Serious: No
  Sender: FDA-Public Use
  Company Number: US-PFIZER INC-2007021858

PATIENT
  Sex: Male
  Weight: 136.1 kg

DRUGS (10)
  1. CHANTIX [Suspect]
     Indication: SMOKING CESSATION THERAPY
     Route: 048
     Dates: start: 20070124
  2. METFORMIN HCL [Concomitant]
     Route: 048
  3. UNDEFINED INSULIN [Concomitant]
  4. NOVOLOG [Concomitant]
  5. LIPITOR [Concomitant]
  6. ADVAIR DISKUS 100/50 [Concomitant]
     Dosage: 250/50
  7. LISINOPRIL [Concomitant]
  8. CYMBALTA [Concomitant]
  9. PAXIL [Concomitant]
  10. DILTIAZEM HYDROCHLORIDE [Concomitant]

REACTIONS (1)
  - OEDEMA PERIPHERAL [None]
